FAERS Safety Report 9769130 (Version 5)
Quarter: 2014Q1

REPORT INFORMATION
  Report Type: Spontaneous
  Country: IT (occurrence: None)
  Receive Date: 20131216
  Receipt Date: 20140214
  Transmission Date: 20141002
  Serious: Yes (Hospitalization)
  Sender: FDA-Public Use
  Company Number: AUR-APL-2013-10493

PATIENT
  Age: 86 Year
  Sex: Female

DRUGS (11)
  1. BISOPROLOL [Suspect]
     Indication: PRODUCT USED FOR UNKNOWN INDICATION
     Dosage: (3 DOSAGE FORMS,TOTAL)
     Route: 048
     Dates: start: 20130417, end: 20130417
  2. METFORMIN [Suspect]
     Indication: PRODUCT USED FOR UNKNOWN INDICATION
     Dosage: (1500 MG,TOTAL), ORAL
     Route: 048
     Dates: start: 20130417, end: 20130417
  3. TAVOR [Suspect]
     Indication: PRODUCT USED FOR UNKNOWN INDICATION
     Dosage: (6 DOSAGE FORMS,TOTAL)
     Route: 048
     Dates: start: 20130417, end: 20130417
  4. CIPRALEX [Suspect]
     Indication: PRODUCT USED FOR UNKNOWN INDICATION
     Dosage: (3 DOSAGE FORMS,TOTAL)
     Route: 048
     Dates: start: 20130417, end: 20130417
  5. DIAMICRON [Suspect]
     Indication: PRODUCT USED FOR UNKNOWN INDICATION
     Dosage: (3 DOSAGE FORMS,TOTAL), ORAL
     Route: 048
     Dates: start: 20130417, end: 20130417
  6. TACHIPIRINA [Suspect]
     Indication: PRODUCT USED FOR UNKNOWN INDICATION
     Dosage: (3 DOSAGE FORMS,TOTAL)
     Route: 048
     Dates: start: 20130417, end: 20130417
  7. SERENASE [Suspect]
     Indication: PRODUCT USED FOR UNKNOWN INDICATION
     Dosage: (2 DOSAGE FORMS,TOTAL)
     Route: 048
     Dates: start: 20130417, end: 20130417
  8. COUMADIN (WARFARIN SODIUM) [Concomitant]
  9. DIBASE (COLECALCIFEROL) [Concomitant]
  10. NEXIUM (ESOMEPRAZOLE MAGNESIUM) [Concomitant]
  11. ISOPTIN (VERAPAMIL HYDROCHLORIDE) [Concomitant]

REACTIONS (5)
  - Intentional overdose [None]
  - Bradycardia [None]
  - Psychomotor hyperactivity [None]
  - Sopor [None]
  - Drug abuse [None]
